FAERS Safety Report 4395450-6 (Version None)
Quarter: 2004Q3

REPORT INFORMATION
  Report Type: 
  Country: None (occurrence: None)
  Receive Date: 20040713
  Receipt Date: 20040621
  Transmission Date: 20050211
  Serious: Yes (Other)
  Sender: FDA-Public Use
  Company Number: PHNU2004DE02192

PATIENT
  Age: 74 Year
  Sex: Male
  Weight: 63 kg

DRUGS (4)
  1. GLEEVEC [Suspect]
     Indication: CHRONIC MYELOID LEUKAEMIA
     Dosage: 400MG/DAY
     Route: 048
     Dates: start: 20040102, end: 20040122
  2. GLEEVEC [Suspect]
     Dosage: 300MG/DAY
     Route: 048
     Dates: start: 20040123, end: 20040206
  3. GLEEVEC [Suspect]
     Dosage: 200MG/DAY
     Route: 048
     Dates: start: 20040206, end: 20040226
  4. GLEEVEC [Suspect]
     Dosage: 100 MG, QD
     Route: 048
     Dates: start: 20040227, end: 20040310

REACTIONS (13)
  - ANGINA PECTORIS [None]
  - BLOOD IMMUNOGLOBULIN G INCREASED [None]
  - BLOOD IMMUNOGLOBULIN M INCREASED [None]
  - CATARACT [None]
  - CONDITION AGGRAVATED [None]
  - DIPLOPIA [None]
  - EYE OPERATION [None]
  - GAMMOPATHY [None]
  - LABORATORY TEST ABNORMAL [None]
  - OEDEMA [None]
  - RETINAL DETACHMENT [None]
  - VISUAL ACUITY REDUCED [None]
  - VITRECTOMY [None]
